FAERS Safety Report 8171413-X (Version None)
Quarter: 2012Q1

REPORT INFORMATION
  Report Type: 
  Country: None (occurrence: None)
  Receive Date: 20120104
  Receipt Date: 20111202
  Transmission Date: 20120608
  Serious: No
  Sender: FDA-Public Use
  Company Number: 2011HGS-002902

PATIENT
  Age: 49 Year
  Sex: Female
  Weight: 108.8633 kg

DRUGS (14)
  1. BENLYSTA [Suspect]
     Indication: SYSTEMIC LUPUS ERYTHEMATOSUS
     Dosage: 10 MG/M2, 1 IN 28 D, INTRAVENOUS DRIP
     Route: 041
     Dates: start: 20111114
  2. ALBUTEROL (SALBUTAMOL) (SALBUTAMOL) [Concomitant]
  3. CYMBALTA (ANTIDEPRESSANTS) (DULOXETINE) [Concomitant]
  4. DICLOFENAC SODIUM [Concomitant]
  5. METFORMIN HCL [Concomitant]
  6. EFFEXOR(VENLAFAXINE HYDROCHLORIDE)(VENLAFAXINE HYDROCHLORIDE) [Concomitant]
  7. ASPIRIN [Concomitant]
  8. SIMVASTATIN [Concomitant]
  9. ADVAIR(SERETIDE MITE)(FLUTICASONE PROPIONATE, SALMETEROL XINAFOATE) [Concomitant]
  10. FOLIC ACID [Concomitant]
  11. AMITRIPTYLINE(AMITRIPTYLINE)(AMITRIPTYLINE) [Concomitant]
  12. MIRAPEX(PRAMIPEXOLE DIHYDROCHLORIDE)(PRAMIPEXOLE DIHYDROCHLORIDE) [Concomitant]
  13. LISINOPRIL [Concomitant]
  14. OMEPRAZOLE [Concomitant]

REACTIONS (7)
  - ERYTHEMA [None]
  - OEDEMA PERIPHERAL [None]
  - COORDINATION ABNORMAL [None]
  - EXCORIATION [None]
  - CELLULITIS [None]
  - FALL [None]
  - FEELING HOT [None]
